FAERS Safety Report 14259184 (Version 1)
Quarter: 2017Q4

REPORT INFORMATION
  Report Type: Spontaneous
  Country: US (occurrence: US)
  Receive Date: 20171207
  Receipt Date: 20171207
  Transmission Date: 20180321
  Serious: No
  Sender: FDA-Public Use
  Company Number: None

PATIENT
  Age: 65 Year
  Sex: Female

DRUGS (1)
  1. ZEJULA [Suspect]
     Active Substance: NIRAPARIB
     Route: 048
     Dates: start: 20170807

REACTIONS (4)
  - Dyspnoea exertional [None]
  - Therapy change [None]
  - Heart rate increased [None]
  - Middle insomnia [None]

NARRATIVE: CASE EVENT DATE: 20170921
